FAERS Safety Report 17449972 (Version 1)
Quarter: 2020Q1

REPORT INFORMATION
  Report Type: Spontaneous
  Country: US (occurrence: US)
  Receive Date: 20200211
  Receipt Date: 20200211
  Transmission Date: 20200409
  Serious: No
  Sender: FDA-Public Use
  Company Number: None

PATIENT
  Age: 61 Year
  Sex: Male
  Weight: 67.5 kg

DRUGS (1)
  1. SAMURAI X PLATINUM [DIETARY SUPPLEMENT] [Suspect]
     Active Substance: DIETARY SUPPLEMENT\HERBALS
     Indication: ERECTILE DYSFUNCTION
     Dosage: ?          QUANTITY:1 TABLET(S);?
     Route: 048
     Dates: start: 20200208, end: 20200208

REACTIONS (5)
  - Headache [None]
  - Hypoaesthesia [None]
  - Dyspepsia [None]
  - Pain [None]
  - Muscle spasms [None]

NARRATIVE: CASE EVENT DATE: 20200208
